FAERS Safety Report 5332485-0 (Version None)
Quarter: 2007Q2

REPORT INFORMATION
  Report Type: 
  Country: None (occurrence: None)
  Receive Date: 20070521
  Receipt Date: 20070508
  Transmission Date: 20071010
  Serious: Yes (Disabling)
  Sender: FDA-Public Use
  Company Number: 6032982

PATIENT
  Age: 42 Year
  Sex: Male

DRUGS (2)
  1. BISOPROLOL FUMARATE [Suspect]
     Indication: ATRIAL FIBRILLATION
     Dosage: 5 MG (5 MG,1 IN 1 D)
     Route: 048
     Dates: start: 20060201
  2. AMIODARONE HYDROCHLORIDE [Suspect]
     Indication: ATRIAL FIBRILLATION
     Dosage: 400 MG (400 MG,1 IN 1 D)
     Route: 048
     Dates: start: 20060301

REACTIONS (2)
  - MUSCLE ATROPHY [None]
  - SPINAL CORD NEOPLASM [None]
